FAERS Safety Report 10094809 (Version 2)
Quarter: 2014Q3

REPORT INFORMATION
  Report Type: Spontaneous
  Country: AU (occurrence: None)
  Receive Date: 20140418
  Receipt Date: 20140722
  Transmission Date: 20150326
  Serious: Yes (Life-Threatening, Hospitalization)
  Sender: FDA-Public Use
  Company Number: AUR-APL-2014-04511

PATIENT
  Age: 1 Day
  Sex: Male

DRUGS (3)
  1. AURO-QUETIAPINE 200 [Suspect]
     Active Substance: QUETIAPINE
     Indication: PRODUCT USED FOR UNKNOWN INDICATION
     Dosage: (400 MG,1 D)
     Route: 064
  2. ELEVIT [Concomitant]
     Active Substance: FOLIC ACID\IRON\MINERALS\VITAMINS
  3. PRISTIQ EXTENDED RELEASE [Suspect]
     Active Substance: DESVENLAFAXINE SUCCINATE
     Indication: PRODUCT USED FOR UNKNOWN INDICATION
     Route: 064

REACTIONS (6)
  - Withdrawal syndrome [None]
  - Caesarean section [None]
  - Foetal exposure during pregnancy [None]
  - Reflexes abnormal [None]
  - Somnolence [None]
  - Foetal distress syndrome [None]

NARRATIVE: CASE EVENT DATE: 20120312
